FAERS Safety Report 25809919 (Version 3)
Quarter: 2025Q4

REPORT INFORMATION
  Report Type: Other
  Country: US (occurrence: US)
  Receive Date: 20250917
  Receipt Date: 20251231
  Transmission Date: 20260118
  Serious: No
  Sender: TRAVERE THERAPEUTICS
  Company Number: US-TRAVERE-2025TVT01163

PATIENT
  Age: 31 Year
  Sex: Female

DRUGS (4)
  1. FILSPARI [Suspect]
     Active Substance: SPARSENTAN
     Indication: IgA nephropathy
     Route: 048
     Dates: start: 20250409
  2. FILSPARI [Suspect]
     Active Substance: SPARSENTAN
     Dosage: TO CUT THE 400MG TABS IN HALF TO BE ON 200MG DAILY
     Route: 048
     Dates: start: 20250501, end: 20250630
  3. FILSPARI [Suspect]
     Active Substance: SPARSENTAN
     Route: 048
  4. FILSPARI [Suspect]
     Active Substance: SPARSENTAN
     Route: 048

REACTIONS (2)
  - Blood potassium increased [Recovered/Resolved]
  - Off label use [Unknown]
